FAERS Safety Report 16055870 (Version 1)
Quarter: 2019Q2

REPORT INFORMATION
  Report Type: Spontaneous
  Country: US (occurrence: US)
  Receive Date: 20190308
  Receipt Date: 20190308
  Transmission Date: 20190711
  Serious: Yes (Other)
  Sender: FDA-Public Use
  Company Number: None

PATIENT
  Age: 71 Year
  Sex: Female
  Weight: 52.2 kg

DRUGS (2)
  1. CAPECITABINE. [Suspect]
     Active Substance: CAPECITABINE
     Indication: BREAST CANCER FEMALE
     Dosage: ?          OTHER FREQUENCY:1000MG BID X14 DAY;?
     Route: 048
     Dates: start: 20180924
  2. XARELTO [Concomitant]
     Active Substance: RIVAROXABAN

REACTIONS (1)
  - Death [None]

NARRATIVE: CASE EVENT DATE: 20190308
